FAERS Safety Report 25637604 (Version 2)
Quarter: 2025Q4

REPORT INFORMATION
  Report Type: Spontaneous
  Country: EU (occurrence: EU)
  Receive Date: 20250804
  Receipt Date: 20251017
  Transmission Date: 20260118
  Serious: Yes (Death, Hospitalization)
  Sender: ROCHE
  Company Number: None

PATIENT
  Age: 67 Year
  Sex: Male
  Weight: 63 kg

DRUGS (14)
  1. MYCOPHENOLATE MOFETIL [Suspect]
     Active Substance: MYCOPHENOLATE MOFETIL
     Indication: Hepatitis
     Dosage: 2 GRAM, QD,(1 G, 2X/DAY)
     Route: 048
  2. MYCOPHENOLATE MOFETIL [Suspect]
     Active Substance: MYCOPHENOLATE MOFETIL
     Indication: Acute hepatic failure
  3. METHYLPREDNISOLONE SODIUM SUCCINATE [Suspect]
     Active Substance: METHYLPREDNISOLONE SODIUM SUCCINATE
     Indication: Acute hepatic failure
     Dosage: 120 MILLIGRAM,QD,(120 MG, DAILY)
     Route: 065
  4. METHYLPREDNISOLONE SODIUM SUCCINATE [Suspect]
     Active Substance: METHYLPREDNISOLONE SODIUM SUCCINATE
     Indication: Hepatitis
  5. PREDNISOLONE [Suspect]
     Active Substance: PREDNISOLONE
     Indication: Hepatitis
     Dosage: 50 MILLIGRAM, QD,(50 MG, DAILY)
     Route: 065
  6. PREDNISOLONE [Suspect]
     Active Substance: PREDNISOLONE
     Indication: Acute hepatic failure
  7. TACROLIMUS [Suspect]
     Active Substance: TACROLIMUS
     Indication: Hepatitis
     Dosage: 4 MILLIGRAM, QD,(2 MG, 2X/DAY)
     Route: 048
  8. TACROLIMUS [Suspect]
     Active Substance: TACROLIMUS
     Indication: Acute hepatic failure
  9. CARBOPLATIN [Suspect]
     Active Substance: CARBOPLATIN
     Indication: Lung cancer metastatic
     Dosage: 650 MILLIGRAM, CYCLE
     Route: 065
  10. CARBOPLATIN [Suspect]
     Active Substance: CARBOPLATIN
     Dosage: 520 MILLIGRAM, CYCLE
     Route: 065
  11. PEMETREXED [Suspect]
     Active Substance: PEMETREXED
     Indication: Lung cancer metastatic
     Dosage: 900 MILLIGRAM, CYCLE
     Route: 065
  12. PEMETREXED [Suspect]
     Active Substance: PEMETREXED
     Dosage: 675 MILLIGRAM, CYCLE
     Route: 065
  13. PEMBROLIZUMAB [Suspect]
     Active Substance: PEMBROLIZUMAB
     Indication: Lung cancer metastatic
     Dosage: 139 MILLIGRAM, CYCLE
     Route: 065
  14. PEMBROLIZUMAB [Suspect]
     Active Substance: PEMBROLIZUMAB
     Dosage: 675 MILLIGRAM, CYCLE
     Route: 065

REACTIONS (2)
  - Hepatic encephalopathy [Fatal]
  - Coma [Fatal]
